FAERS Safety Report 14055472 (Version 1)
Quarter: 2017Q4

REPORT INFORMATION
  Report Type: Spontaneous
  Country: HR (occurrence: HR)
  Receive Date: 20171006
  Receipt Date: 20171006
  Transmission Date: 20180321
  Serious: Yes (Other)
  Sender: FDA-Public Use
  Company Number: HR-ROCHE-1999885

PATIENT
  Sex: Female

DRUGS (13)
  1. NOLVADEX [Suspect]
     Active Substance: TAMOXIFEN CITRATE
     Indication: INVASIVE LOBULAR BREAST CARCINOMA
     Route: 048
     Dates: start: 201207, end: 201212
  2. CAPECITABINE. [Suspect]
     Active Substance: CAPECITABINE
     Indication: INVASIVE LOBULAR BREAST CARCINOMA
     Dosage: UNK
     Route: 065
     Dates: start: 201509, end: 201609
  3. FULVESTRANT. [Suspect]
     Active Substance: FULVESTRANT
     Indication: INVASIVE LOBULAR BREAST CARCINOMA
     Dosage: UNK
     Route: 065
     Dates: start: 201311, end: 201502
  4. PACLITAXEL. [Suspect]
     Active Substance: PACLITAXEL
     Indication: INVASIVE LOBULAR BREAST CARCINOMA
     Dosage: 8 UNK, UNK
     Route: 065
     Dates: start: 201610, end: 201701
  5. EXEMESTANE. [Suspect]
     Active Substance: EXEMESTANE
     Indication: INVASIVE LOBULAR BREAST CARCINOMA
     Dosage: UNK
     Route: 065
     Dates: start: 201212, end: 201310
  6. EPIRUBICIN [Suspect]
     Active Substance: EPIRUBICIN
     Indication: ADJUVANT THERAPY
     Route: 065
  7. ZOMETA [Suspect]
     Active Substance: ZOLEDRONIC ACID
     Indication: INVASIVE LOBULAR BREAST CARCINOMA
     Dosage: UNK UNK, QD
     Route: 042
     Dates: start: 201208
  8. ANASTROZOLE. [Suspect]
     Active Substance: ANASTROZOLE
     Indication: INVASIVE LOBULAR BREAST CARCINOMA
     Dosage: UNK
     Route: 065
     Dates: start: 200711, end: 201207
  9. DISODIUM PAMIDRONATE [Suspect]
     Active Substance: PAMIDRONATE DISODIUM
     Indication: INVASIVE LOBULAR BREAST CARCINOMA
     Dosage: UNK UNK, QD
     Route: 065
     Dates: start: 201208
  10. MEGACE [Suspect]
     Active Substance: MEGESTROL ACETATE
     Indication: INVASIVE LOBULAR BREAST CARCINOMA
     Dosage: UNK
     Route: 048
     Dates: start: 201502, end: 201509
  11. GEMCITABINE [Suspect]
     Active Substance: GEMCITABINE\GEMCITABINE HYDROCHLORIDE
     Indication: INVASIVE LOBULAR BREAST CARCINOMA
     Dosage: UNK
     Route: 065
     Dates: start: 201701, end: 201704
  12. CYCLOPHOSPHAMIDE. [Suspect]
     Active Substance: CYCLOPHOSPHAMIDE
     Indication: ADJUVANT THERAPY
     Route: 065
  13. FLUOROURACIL. [Suspect]
     Active Substance: FLUOROURACIL
     Indication: ADJUVANT THERAPY
     Route: 065

REACTIONS (2)
  - Malignant neoplasm progression [Not Recovered/Not Resolved]
  - Breast cancer metastatic [Unknown]
